FAERS Safety Report 21499243 (Version 1)
Quarter: 2022Q4

REPORT INFORMATION
  Report Type: Spontaneous
  Country: US (occurrence: US)
  Receive Date: 20221024
  Receipt Date: 20221024
  Transmission Date: 20230113
  Serious: No
  Sender: FDA-Public Use
  Company Number: US-BRISTOL-MYERS SQUIBB COMPANY-2022-124233

PATIENT
  Age: 34 Year
  Sex: Male

DRUGS (2)
  1. ZEPOSIA [Suspect]
     Active Substance: OZANIMOD HYDROCHLORIDE
     Indication: Crohn^s disease
     Dosage: TAKE 0.23 MG BY MOUTH 1TIME A DAY FOR 4 DAYS THEN TAKE 0.46 MG BY MOUTH 1 TIME A DAY FOR 3 DAYS.
     Route: 048
     Dates: start: 202210
  2. ZEPOSIA [Suspect]
     Active Substance: OZANIMOD HYDROCHLORIDE
     Route: 048
     Dates: start: 202210

REACTIONS (2)
  - Drug ineffective [Unknown]
  - Intentional product use issue [Unknown]
